FAERS Safety Report 9551280 (Version 10)
Quarter: 2015Q4

REPORT INFORMATION
  Report Type: Spontaneous
  Country: CA (occurrence: CA)
  Receive Date: 20130925
  Receipt Date: 20151009
  Transmission Date: 20160305
  Serious: Yes (Other)
  Sender: FDA-Public Use
  Company Number: CA-ROCHE-1278745

PATIENT
  Age: 32 Year
  Sex: Female

DRUGS (5)
  1. XOLAIR [Suspect]
     Active Substance: OMALIZUMAB
     Route: 058
  2. THEOPHYLLINE [Suspect]
     Active Substance: THEOPHYLLINE ANHYDROUS
     Indication: PRODUCT USED FOR UNKNOWN INDICATION
     Route: 065
  3. VENTOLINE [Concomitant]
     Active Substance: ALBUTEROL
  4. XOLAIR [Suspect]
     Active Substance: OMALIZUMAB
     Indication: ASTHMA
     Route: 058
     Dates: start: 20120305
  5. SPIRIVA [Concomitant]
     Active Substance: TIOTROPIUM BROMIDE MONOHYDRATE

REACTIONS (21)
  - Influenza [Recovering/Resolving]
  - Seasonal allergy [Unknown]
  - Migraine [Recovering/Resolving]
  - Nausea [Recovered/Resolved]
  - Sinusitis [Recovered/Resolved]
  - Nasal inflammation [Not Recovered/Not Resolved]
  - Nasal septum deviation [Unknown]
  - Ovarian cyst [Unknown]
  - Chest pain [Recovering/Resolving]
  - Bronchitis [Recovered/Resolved]
  - Biliary colic [Recovered/Resolved]
  - Abdominal pain upper [Recovering/Resolving]
  - Diarrhoea [Recovered/Resolved]
  - Oedema peripheral [Recovering/Resolving]
  - Asthma [Unknown]
  - Headache [Not Recovered/Not Resolved]
  - Pain [Recovering/Resolving]
  - Productive cough [Unknown]
  - Complex regional pain syndrome [Unknown]
  - Dizziness [Recovered/Resolved]
  - Rash [Recovering/Resolving]

NARRATIVE: CASE EVENT DATE: 201302
